FAERS Safety Report 9045428 (Version 1)
Quarter: 2013Q1

REPORT INFORMATION
  Report Type: Report from Study
  Country: US (occurrence: US)
  Receive Date: 20130131
  Receipt Date: 20130131
  Transmission Date: 20140127
  Serious: No
  Sender: FDA-Public Use
  Company Number: US-ABBOTT-12P-163-1004368-00

PATIENT
  Age: 66 Year
  Sex: Female

DRUGS (6)
  1. HUMIRA [Suspect]
     Indication: CROHN^S DISEASE
     Dates: start: 201003
  2. ASACOL [Concomitant]
     Indication: PRODUCT USED FOR UNKNOWN INDICATION
     Dosage: 9 TABS DAILY
  3. CALCIUM [Concomitant]
     Dosage: 2 TABS DAILY
  4. FISH OIL [Concomitant]
     Dosage: 2 TABS DAILY
  5. RED YEAST RICE [Concomitant]
     Dosage: 2 TABS DAILY
  6. BABY ASPIRIN [Concomitant]
     Indication: PRODUCT USED FOR UNKNOWN INDICATION

REACTIONS (8)
  - Incorrect dose administered [Unknown]
  - Device malfunction [Unknown]
  - Injection site pain [Recovered/Resolved]
  - Injection site haemorrhage [Unknown]
  - Injection site urticaria [Unknown]
  - Crohn^s disease [Unknown]
  - Insomnia [Unknown]
  - Muscle spasms [Unknown]
